FAERS Safety Report 26108771 (Version 1)
Quarter: 2025Q4

REPORT INFORMATION
  Report Type: Spontaneous
  Country: GB (occurrence: GB)
  Receive Date: 20251201
  Receipt Date: 20251201
  Transmission Date: 20260118
  Serious: Yes (Other)
  Sender: MYLAN
  Company Number: GB-MYLANLABS-2025M1100126

PATIENT
  Age: 49 Year
  Sex: Female

DRUGS (13)
  1. METHOTREXATE [Suspect]
     Active Substance: METHOTREXATE
     Indication: Chronic cutaneous lupus erythematosus
     Dosage: UNK
  2. PREDNISOLONE [Suspect]
     Active Substance: PREDNISOLONE
     Indication: Chronic cutaneous lupus erythematosus
     Dosage: UNK
  3. PREDNISOLONE [Suspect]
     Active Substance: PREDNISOLONE
     Dosage: UNK, DOSE REDUCED
  4. BELIMUMAB [Suspect]
     Active Substance: BELIMUMAB
     Indication: Chronic cutaneous lupus erythematosus
     Dosage: UNK
  5. THALIDOMIDE [Concomitant]
     Active Substance: THALIDOMIDE
     Indication: Chronic cutaneous lupus erythematosus
     Dosage: UNK
  6. HYDROXYCHLOROQUINE [Concomitant]
     Active Substance: HYDROXYCHLOROQUINE
     Indication: Chronic cutaneous lupus erythematosus
     Dosage: UNK
  7. QUINACRINE [Concomitant]
     Active Substance: QUINACRINE
     Indication: Chronic cutaneous lupus erythematosus
     Dosage: UNK
  8. RITUXIMAB [Concomitant]
     Active Substance: RITUXIMAB
     Indication: Chronic cutaneous lupus erythematosus
     Dosage: UNK
  9. DAPSONE [Concomitant]
     Active Substance: DAPSONE
     Indication: Chronic cutaneous lupus erythematosus
     Dosage: UNK
  10. MYCOPHENOLATE MOFETIL [Concomitant]
     Active Substance: MYCOPHENOLATE MOFETIL
     Indication: Chronic cutaneous lupus erythematosus
     Dosage: UNK
  11. FUMARIC ACID [Concomitant]
     Active Substance: FUMARIC ACID
     Indication: Chronic cutaneous lupus erythematosus
     Dosage: UNK
  12. ACITRETIN [Concomitant]
     Active Substance: ACITRETIN
     Indication: Chronic cutaneous lupus erythematosus
     Dosage: UNK
  13. CYCLOSPORINE [Concomitant]
     Active Substance: CYCLOSPORINE
     Indication: Chronic cutaneous lupus erythematosus
     Dosage: UNK

REACTIONS (1)
  - Drug ineffective [Unknown]
